FAERS Safety Report 16955993 (Version 1)
Quarter: 2019Q4

REPORT INFORMATION
  Report Type: Spontaneous
  Country: US (occurrence: US)
  Receive Date: 20190904
  Receipt Date: 20190904
  Transmission Date: 20200122
  Serious: Yes (Hospitalization, Other)
  Sender: FDA-Public Use
  Company Number: None

PATIENT
  Age: 75 Year
  Sex: Female
  Weight: 57.61 kg

DRUGS (13)
  1. BAYER ASPIRIN [Concomitant]
     Active Substance: ASPIRIN
  2. HYDROCHLOROTHIAZIDE 72.5 MG CAPS LORAN FOR MICROZIDE [Suspect]
     Active Substance: HYDROCHLOROTHIAZIDE
     Indication: BLOOD PRESSURE MEASUREMENT
     Dosage: ?          QUANTITY:12.5 MG MILLIGRAM(S);?
     Route: 048
     Dates: start: 20190416, end: 20190514
  3. POTASSIUM CHLORIDE. [Concomitant]
     Active Substance: POTASSIUM CHLORIDE
  4. METFORMIN [Concomitant]
     Active Substance: METFORMIN HYDROCHLORIDE
  5. CLOPIDOGREL [Concomitant]
     Active Substance: CLOPIDOGREL BISULFATE
  6. ATORVASTATIN CALCIUM. [Concomitant]
     Active Substance: ATORVASTATIN CALCIUM
  7. MULTI VITAMIN [Concomitant]
     Active Substance: VITAMINS
  8. CHLORTHIALIDONE [Concomitant]
  9. FISH OIL [Concomitant]
     Active Substance: FISH OIL
  10. LOSARTAN POTASSIUM. [Concomitant]
     Active Substance: LOSARTAN POTASSIUM
  11. METOPROLOL. [Concomitant]
     Active Substance: METOPROLOL
  12. AMLODIPINE [Concomitant]
     Active Substance: AMLODIPINE BESYLATE
  13. VITAMIN D3 [Concomitant]
     Active Substance: CHOLECALCIFEROL

REACTIONS (3)
  - Head injury [None]
  - Fall [None]
  - Loss of consciousness [None]

NARRATIVE: CASE EVENT DATE: 20190724
